FAERS Safety Report 4301520-0 (Version None)
Quarter: 2004Q1

REPORT INFORMATION
  Report Type: 
  Country: None (occurrence: None)
  Receive Date: 20040219
  Receipt Date: 20040210
  Transmission Date: 20041129
  Serious: Yes (Hospitalization)
  Sender: FDA-Public Use
  Company Number: FEI2004-0019

PATIENT
  Age: 32 Year
  Sex: Female
  Weight: 48.0813 kg

DRUGS (1)
  1. PARAGARD T380A (INTRAUTERINE CONTRACEPTIVES) (UTERINE) [Suspect]
     Indication: CONTRACEPTION
     Dosage: INTRA-UTERINE
     Route: 015
     Dates: start: 20030822, end: 20031229

REACTIONS (3)
  - MUSCLE CRAMP [None]
  - PYREXIA [None]
  - TUBO-OVARIAN ABSCESS [None]
